FAERS Safety Report 26152608 (Version 1)
Quarter: 2025Q4

REPORT INFORMATION
  Report Type: Spontaneous
  Country: US (occurrence: US)
  Receive Date: 20251214
  Receipt Date: 20251214
  Transmission Date: 20260117
  Serious: No
  Sender: Atnahs Healthcare
  Company Number: US-ATNAHS-ATNAHS20250302585

PATIENT
  Sex: Female
  Weight: 108.39 kg

DRUGS (24)
  1. VALIUM [Suspect]
     Active Substance: DIAZEPAM
     Indication: Product used for unknown indication
     Dosage: 5 MILLIGRAM, 1X/DAY, ONE BY MOUTH 1 HOUR BEFORE MRI SCAN
     Dates: start: 20210916
  2. OCREVUS [Suspect]
     Active Substance: OCRELIZUMAB
     Indication: Product used for unknown indication
     Dosage: 600 MG IN 500 ML NS IV EVERY 6 MONTHS
     Route: 042
     Dates: start: 20241030
  3. ACETAMINOPHEN [Concomitant]
     Active Substance: ACETAMINOPHEN
     Indication: Product used for unknown indication
     Dosage: 2 TABLET(S) BY ORAL ROUTE 1000 MG PO 30 MINUTES PRIOR TO INFUSION
     Dates: start: 20241030
  4. DIPHENHYDRAMINE [Concomitant]
     Active Substance: DIPHENHYDRAMINE
     Indication: Product used for unknown indication
     Dosage: 25 MG CAPSULE TAKE 2 CAPSULE(S) BY ORAL ROUTE. ADMINISTER NOTE: 50 MG PO 30 MINUTES
     Dates: start: 20241030
  5. DIPHENHYDRAMINE [Concomitant]
     Active Substance: DIPHENHYDRAMINE
     Dosage: 50 MILLIGRAM
  6. SODIUM CHLORIDE [Concomitant]
     Active Substance: SODIUM CHLORIDE
     Indication: Product used for unknown indication
     Dosage: FLUSH IV LINE WITH 20ML, OF NS PRIOR TO DISCHARGE
     Dates: start: 20241030
  7. DULOXETINE [Concomitant]
     Active Substance: DULOXETINE
     Indication: Product used for unknown indication
     Dosage: 60 MILLIGRAM, 1X/DAY
     Dates: start: 20220806
  8. FAMOTIDINE [Concomitant]
     Active Substance: FAMOTIDINE
     Indication: Product used for unknown indication
     Dosage: 1 TABLETS) BY ORAL ROUTE ADMINISTER 30 MINS PRIOR TO INFUSION
     Dates: start: 20240515
  9. LISDEXAMFETAMINE [Concomitant]
     Active Substance: LISDEXAMFETAMINE
     Indication: Product used for unknown indication
     Dosage: TAKE 1 CAPSULE BY MOUTH EVERY DAY
     Dates: start: 20241002
  10. LORATADINE [Concomitant]
     Active Substance: LORATADINE
     Indication: Product used for unknown indication
     Dosage: 1 TABLET(S) BY ORAL ROUTE ADMINISTER 30 MINUTES PRIOR TO INFUSION
     Dates: start: 20240515
  11. MELOXICAM [Concomitant]
     Active Substance: MELOXICAM
     Indication: Product used for unknown indication
     Dosage: 1 DOSAGE FORM, 1X/DAY
     Dates: start: 20240925
  12. METHYLPREDNISOLONE SODIUM SUCCINATE [Concomitant]
     Active Substance: METHYLPREDNISOLONE SODIUM SUCCINATE
     Indication: Product used for unknown indication
     Dosage: 125 MG IV OVER 30 MIN PRIOR TO INFUSION
     Dates: start: 20241030
  13. OMEPRAZOLE [Concomitant]
     Active Substance: OMEPRAZOLE
     Indication: Product used for unknown indication
     Dosage: 40 MG, 1 IN 1 AS NECESSARY
     Dates: start: 20220906
  14. ONDANSETRON HYDROCHLORIDE [Concomitant]
     Active Substance: ONDANSETRON HYDROCHLORIDE
     Indication: Product used for unknown indication
     Dosage: 8 MG, 1 IN 1 AS NECESSARY
     Dates: start: 20221013
  15. SODIUM CHLORIDE [Concomitant]
     Active Substance: SODIUM CHLORIDE
     Indication: Product used for unknown indication
     Dosage: INJECT 500 ML BY INTRAVENOUS ROUTE AS DIRECTED
     Route: 042
     Dates: start: 20241030
  16. TIZANIDINE [Concomitant]
     Active Substance: TIZANIDINE
     Indication: Product used for unknown indication
     Dosage: 1 TABLET(S) EVERY DAY BY ORAL ROUTE AT BEDTIME
     Dates: start: 20240925
  17. NATALIZUMAB [Concomitant]
     Active Substance: NATALIZUMAB
     Indication: Product used for unknown indication
     Dosage: 300 MILLIGRAM, 1 IN 4 WEEK
     Route: 042
     Dates: start: 20180529, end: 20220324
  18. NATALIZUMAB [Concomitant]
     Active Substance: NATALIZUMAB
     Dosage: 300 MILLIGRAM, 1 IN 6 WEEK
     Route: 042
     Dates: start: 20220324
  19. TRAZODONE [Concomitant]
     Active Substance: TRAZODONE HYDROCHLORIDE
     Indication: Product used for unknown indication
     Dosage: 50 MILLIGRAM, 1 IN 1 AS NECESSARY), 1 TABLET AT BEDTIME AS NEEDED
     Dates: start: 20181005, end: 20200109
  20. TRAZODONE [Concomitant]
     Active Substance: TRAZODONE HYDROCHLORIDE
     Dosage: 50 MILLIGRAM, 1 IN 1 AS NECESSARY), 1 TABLET AT BEDTIME AS NEEDED
     Dates: start: 20200109, end: 20201218
  21. TRAZODONE [Concomitant]
     Active Substance: TRAZODONE HYDROCHLORIDE
     Dosage: 50 MILLIGRAM, 1 IN 1 AS NECESSARY), 1 TABLET AT BEDTIME AS NEEDED
     Dates: start: 20201218
  22. TRAZODONE [Concomitant]
     Active Substance: TRAZODONE HYDROCHLORIDE
     Dosage: 100 MILLIGRAM,  1 TABLET EVERY NIGHT AT BEDTIME
     Dates: start: 20210311
  23. TRAZODONE [Concomitant]
     Active Substance: TRAZODONE HYDROCHLORIDE
     Dosage: 100 MILLIGRAM,  1 TABLET EVERY NIGHT AT BEDTIME
     Dates: start: 20220308
  24. SOLU-MEDROL [Concomitant]
     Active Substance: METHYLPREDNISOLONE SODIUM SUCCINATE
     Indication: Product used for unknown indication

REACTIONS (7)
  - Vitamin D deficiency [Unknown]
  - Depression [Unknown]
  - Restless legs syndrome [Unknown]
  - Myasthenia gravis [Unknown]
  - Sleep disorder [Unknown]
  - Neurogenic bladder [Unknown]
  - Muscular weakness [Unknown]
